FAERS Safety Report 22312722 (Version 1)
Quarter: 2023Q2

REPORT INFORMATION
  Report Type: Spontaneous
  Country: JP (occurrence: JP)
  Receive Date: 20230512
  Receipt Date: 20230512
  Transmission Date: 20230721
  Serious: Yes (Hospitalization)
  Sender: FDA-Public Use
  Company Number: JP-ASTELLAS-2023JP005433

PATIENT
  Age: 6 Decade
  Sex: Female

DRUGS (1)
  1. MIRABEGRON [Suspect]
     Active Substance: MIRABEGRON
     Indication: Hypertonic bladder
     Route: 048
     Dates: start: 2021, end: 2023

REACTIONS (2)
  - Urinary tract infection [Recovered/Resolved]
  - Decubitus ulcer [Recovered/Resolved]
